FAERS Safety Report 22796343 (Version 4)
Quarter: 2025Q2

REPORT INFORMATION
  Report Type: Report from Study
  Country: CA (occurrence: CA)
  Receive Date: 20230808
  Receipt Date: 20250401
  Transmission Date: 20250717
  Serious: Yes (Other)
  Sender: JOHNSON AND JOHNSON
  Company Number: CA-JNJFOC-20230405547

PATIENT
  Age: 15 Year
  Sex: Male
  Weight: 65 kg

DRUGS (7)
  1. REMICADE [Suspect]
     Active Substance: INFLIXIMAB
     Indication: Crohn^s disease
     Dosage: PRESCRIBED 5 MG/KG WEEK 0, 8.5 MG/KG WEEK 2,6 EVERY 6 WEEKS. ON 06-APR-2023, THE PATIENT RECEIVED 1S
     Route: 041
     Dates: start: 20230406
  2. REMICADE [Suspect]
     Active Substance: INFLIXIMAB
     Route: 041
     Dates: start: 2023
  3. REMICADE [Suspect]
     Active Substance: INFLIXIMAB
     Route: 041
     Dates: start: 2023
  4. REMICADE [Suspect]
     Active Substance: INFLIXIMAB
     Route: 041
     Dates: start: 2023
  5. REMICADE [Suspect]
     Active Substance: INFLIXIMAB
     Route: 041
     Dates: start: 2023
  6. REMICADE [Suspect]
     Active Substance: INFLIXIMAB
     Route: 041
  7. SOLU-CORTEF [Concomitant]
     Active Substance: HYDROCORTISONE SODIUM SUCCINATE
     Indication: Premedication
     Route: 042
     Dates: start: 2023

REACTIONS (8)
  - Intestinal operation [Unknown]
  - Abdominal pain lower [Recovered/Resolved]
  - Swelling [Recovered/Resolved]
  - Drug level decreased [Unknown]
  - Fatigue [Unknown]
  - Off label use [Unknown]
  - Vomiting [Recovering/Resolving]
  - Nausea [Recovering/Resolving]

NARRATIVE: CASE EVENT DATE: 20230101
